FAERS Safety Report 21068378 (Version 3)
Quarter: 2022Q4

REPORT INFORMATION
  Report Type: Report from Study
  Country: BR (occurrence: BR)
  Receive Date: 20220712
  Receipt Date: 20221208
  Transmission Date: 20230113
  Serious: Yes (Hospitalization, Other)
  Sender: FDA-Public Use
  Company Number: BR-BIOGEN-2022BI01138070

PATIENT
  Sex: Male
  Weight: 62 kg

DRUGS (18)
  1. SPINRAZA [Suspect]
     Active Substance: NUSINERSEN
     Indication: Spinal muscular atrophy
     Route: 050
     Dates: start: 20200716
  2. Depakote (Sodium Divalproex) [Concomitant]
     Indication: Seizure
     Dosage: 3 TABLETS
     Route: 050
     Dates: start: 2014
  3. Depakote (Sodium Divalproex) [Concomitant]
     Route: 050
     Dates: start: 2014
  4. VITAMIN C [Concomitant]
     Active Substance: ASCORBIC ACID
     Indication: Vitamin supplementation
     Route: 050
  5. VITAMIN C [Concomitant]
     Active Substance: ASCORBIC ACID
     Route: 050
  6. VITAMIN D [Concomitant]
     Active Substance: VITAMIN D NOS
     Indication: Vitamin supplementation
     Route: 050
  7. VITAMIN D [Concomitant]
     Active Substance: VITAMIN D NOS
     Dosage: 10 DROPS
     Route: 050
  8. VITAMIN D [Concomitant]
     Active Substance: VITAMIN D NOS
     Route: 050
  9. SYNTHROID [Concomitant]
     Active Substance: LEVOTHYROXINE SODIUM
     Indication: Hypothyroidism
     Route: 050
     Dates: start: 2019
  10. SYNTHROID [Concomitant]
     Active Substance: LEVOTHYROXINE SODIUM
     Route: 050
     Dates: start: 2019
  11. Selozok (Metoprolol Succinate) [Concomitant]
     Indication: Hypertension
     Route: 050
     Dates: start: 2017
  12. Selozok (Metoprolol Succinate) [Concomitant]
     Route: 050
     Dates: start: 2020
  13. Targifor C (Ascorbic Acid +Arginine Aspartate) [Concomitant]
     Indication: Vitamin supplementation
     Route: 050
  14. FOLIC ACID [Concomitant]
     Active Substance: FOLIC ACID
     Indication: Vitamin supplementation
     Dosage: 40 DROPS
     Route: 050
  15. FOLIC ACID [Concomitant]
     Active Substance: FOLIC ACID
     Route: 050
  16. NEXIUM [Concomitant]
     Active Substance: ESOMEPRAZOLE MAGNESIUM
     Indication: Gastrointestinal disorder prophylaxis
     Route: 050
  17. ZOLPIDEM TARTRATE [Concomitant]
     Active Substance: ZOLPIDEM TARTRATE
     Indication: Insomnia
     Route: 050
     Dates: start: 2019
  18. ZOLPIDEM TARTRATE [Concomitant]
     Active Substance: ZOLPIDEM TARTRATE
     Route: 050

REACTIONS (13)
  - Tooth development disorder [Recovered/Resolved]
  - Post procedural sepsis [Recovered/Resolved]
  - Keratitis [Recovered/Resolved]
  - Blindness transient [Recovered/Resolved]
  - Platelet count decreased [Not Recovered/Not Resolved]
  - Weight decreased [Not Recovered/Not Resolved]
  - Tooth abscess [Recovered/Resolved]
  - Dysuria [Not Recovered/Not Resolved]
  - Hypertriglyceridaemia [Not Recovered/Not Resolved]
  - Hypophagia [Unknown]
  - Platelet disorder [Not Recovered/Not Resolved]
  - Post procedural contusion [Recovered/Resolved]
  - Post procedural haematoma [Recovered/Resolved]

NARRATIVE: CASE EVENT DATE: 20200101
